FAERS Safety Report 8984248 (Version 1)
Quarter: 2012Q4

REPORT INFORMATION
  Report Type: Report from Study
  Country: CA (occurrence: CA)
  Receive Date: 20121226
  Receipt Date: 20121226
  Transmission Date: 20130627
  Serious: Yes (Hospitalization, Other)
  Sender: FDA-Public Use
  Company Number: CA-JNJFOC-20121209517

PATIENT
  Age: 29 Year
  Sex: Male
  Weight: 100 kg

DRUGS (3)
  1. REMICADE [Suspect]
     Indication: CROHN^S DISEASE
     Route: 042
     Dates: start: 20070927
  2. METHOTREXATE [Concomitant]
     Route: 065
  3. CELEXA [Concomitant]
     Route: 065

REACTIONS (2)
  - Fistula [Unknown]
  - Eye infection [Unknown]
